FAERS Safety Report 6411546-9 (Version None)
Quarter: 2009Q4

REPORT INFORMATION
  Report Type: 
  Country: None (occurrence: None)
  Receive Date: 20091021
  Receipt Date: 20091021
  Transmission Date: 20100525
  Serious: Yes (Disabling)
  Sender: FDA-Public Use
  Company Number: None

PATIENT
  Age: 37 Year
  Sex: Female
  Weight: 96.8 kg

DRUGS (1)
  1. ALLI [Suspect]
     Indication: WEIGHT CONTROL
     Dosage: 1 CAPSULE 3 TIMES DAILY BY MOUTH
     Route: 048
     Dates: start: 20080101, end: 20080201

REACTIONS (6)
  - GALLBLADDER DISORDER [None]
  - HEPATIC ENZYME INCREASED [None]
  - IMPAIRED WORK ABILITY [None]
  - LIVER INJURY [None]
  - MALAISE [None]
  - NAUSEA [None]
